FAERS Safety Report 25890295 (Version 4)
Quarter: 2025Q4

REPORT INFORMATION
  Report Type: Spontaneous
  Country: TW (occurrence: TW)
  Receive Date: 20251007
  Receipt Date: 20251105
  Transmission Date: 20260117
  Serious: Yes (Death)
  Sender: ELI LILLY AND COMPANY
  Company Number: TW-ELI_LILLY_AND_COMPANY-TW202510002304

PATIENT
  Age: 65 Year
  Sex: Female
  Weight: 54 kg

DRUGS (2)
  1. VERZENIO [Suspect]
     Active Substance: ABEMACICLIB
     Indication: Breast cancer
     Dosage: 150 MG, BID
     Route: 048
     Dates: start: 202407, end: 20250820
  2. FEMARA [Concomitant]
     Active Substance: LETROZOLE
     Indication: Product used for unknown indication

REACTIONS (3)
  - Respiratory failure [Fatal]
  - Pneumonia [Fatal]
  - Interstitial lung disease [Fatal]
